FAERS Safety Report 9016205 (Version 2)
Quarter: 2013Q1

REPORT INFORMATION
  Report Type: Spontaneous
  Country: US (occurrence: US)
  Receive Date: 20130116
  Receipt Date: 20130201
  Transmission Date: 20140127
  Serious: Yes (Death)
  Sender: FDA-Public Use
  Company Number: US-B.I. PHARMACEUTICALS,INC./RIDGEFIELD-2013-BI-00880BP

PATIENT
  Age: 86 Year
  Sex: Female
  Weight: 59 kg

DRUGS (5)
  1. PRADAXA [Suspect]
     Indication: CEREBROVASCULAR ACCIDENT PROPHYLAXIS
     Dosage: 300 MG
     Route: 048
     Dates: start: 20121217
  2. PRADAXA [Suspect]
     Indication: ATRIAL FIBRILLATION
  3. MULTAQ [Concomitant]
  4. BYSTOLIC [Concomitant]
  5. CRESTOR [Concomitant]

REACTIONS (1)
  - Haemorrhage intracranial [Fatal]
